APPROVED DRUG PRODUCT: MICONAZOLE NITRATE
Active Ingredient: MICONAZOLE NITRATE
Strength: 2%
Dosage Form/Route: CREAM;VAGINAL
Application: A074366 | Product #001
Applicant: COSETTE PHARMACEUTICALS INC
Approved: Feb 22, 1996 | RLD: No | RS: No | Type: DISCN